FAERS Safety Report 6270586-3 (Version None)
Quarter: 2009Q3

REPORT INFORMATION
  Report Type: 
  Country: None (occurrence: None)
  Receive Date: 20090716
  Receipt Date: 20090318
  Transmission Date: 20100115
  Serious: Yes (Other)
  Sender: FDA-Public Use
  Company Number: US-JNJCH-2009005012

PATIENT
  Age: 43 Year
  Sex: Female
  Weight: 77.1 kg

DRUGS (1)
  1. ROGAINE [Suspect]
     Indication: ALOPECIA
     Dosage: TEXT:AS DIRECTED TWICE A DAY
     Route: 061
     Dates: start: 20090202, end: 20090220

REACTIONS (13)
  - APPLICATION SITE PRURITUS [None]
  - APPLICATION SITE SWELLING [None]
  - DERMATITIS CONTACT [None]
  - EAR PRURITUS [None]
  - EXPIRED DRUG ADMINISTERED [None]
  - EYE SWELLING [None]
  - HYPERSENSITIVITY [None]
  - MOLLUSCUM CONTAGIOSUM [None]
  - PAIN [None]
  - PRURITUS [None]
  - SKIN LESION [None]
  - SWELLING FACE [None]
  - URTICARIA [None]
